FAERS Safety Report 20335440 (Version 1)
Quarter: 2022Q1

REPORT INFORMATION
  Report Type: Spontaneous
  Country: US (occurrence: US)
  Receive Date: 20220114
  Receipt Date: 20220114
  Transmission Date: 20220424
  Serious: Yes (Other)
  Sender: FDA-Public Use
  Company Number: US-AMGEN-USASP2022001829

PATIENT
  Age: 69 Year
  Sex: Female

DRUGS (2)
  1. KANJINTI [Suspect]
     Active Substance: TRASTUZUMAB-ANNS
     Indication: Metastases to central nervous system
     Dosage: 420 MILLIGRAM
     Route: 065
     Dates: start: 20201204
  2. KANJINTI [Suspect]
     Active Substance: TRASTUZUMAB-ANNS
     Indication: Off label use

REACTIONS (2)
  - Metastases to central nervous system [Unknown]
  - Off label use [Unknown]

NARRATIVE: CASE EVENT DATE: 20201204
